FAERS Safety Report 6722270-7 (Version None)
Quarter: 2010Q2

REPORT INFORMATION
  Report Type: 
  Country: None (occurrence: None)
  Receive Date: 20100512
  Receipt Date: 20100504
  Transmission Date: 20101027
  Serious: Yes (Other)
  Sender: FDA-Public Use
  Company Number: BR-SANOFI-AVENTIS-2010SA026167

PATIENT
  Sex: Male
  Weight: 83 kg

DRUGS (14)
  1. LANTUS [Suspect]
     Indication: TYPE 1 DIABETES MELLITUS
     Route: 058
     Dates: start: 20060101
  2. AUTOPEN 24 [Suspect]
     Dates: start: 20100101, end: 20100503
  3. NOVORAPID [Concomitant]
     Indication: TYPE 1 DIABETES MELLITUS
     Route: 058
     Dates: start: 20050101
  4. DIOVAN HCT [Concomitant]
     Indication: BLOOD PRESSURE
     Dosage: 160 X 25 MG
     Route: 048
  5. DIOVAN HCT [Concomitant]
     Dosage: 160 X 25 MG
     Route: 048
  6. ENALAPRIL MALEATE [Concomitant]
     Indication: HYPERTENSION
     Route: 048
     Dates: start: 20100101
  7. CILOSTAZOL [Concomitant]
     Route: 048
  8. ASPIRIN [Concomitant]
     Indication: ANTICOAGULANT THERAPY
     Dosage: 1 TABLET
     Route: 048
  9. ATORVASTATIN [Concomitant]
     Route: 048
  10. ENALAPRIL MALEATE [Concomitant]
     Indication: HYPERTENSION
     Route: 048
  11. ALL OTHER THERAPEUTIC PRODUCTS [Concomitant]
     Route: 048
  12. VITAMIN B COMPLEX CAP [Concomitant]
     Dosage: 2 TABLETS
     Route: 048
  13. ALL OTHER THERAPEUTIC PRODUCTS [Concomitant]
     Route: 048
  14. INSULIN DETEMIR [Concomitant]
     Indication: TYPE 1 DIABETES MELLITUS
     Route: 058

REACTIONS (8)
  - DRY SKIN [None]
  - HYPERHIDROSIS [None]
  - HYPOGLYCAEMIA [None]
  - INJECTION SITE HAEMORRHAGE [None]
  - INJECTION SITE PAIN [None]
  - INJECTION SITE SWELLING [None]
  - RENAL FAILURE [None]
  - TREMOR [None]
